FAERS Safety Report 23542509 (Version 2)
Quarter: 2024Q1

REPORT INFORMATION
  Report Type: Other
  Country: US (occurrence: None)
  Receive Date: 20240220
  Receipt Date: 20240306
  Transmission Date: 20240409
  Serious: Yes (Other)
  Sender: FDA-Public Use
  Company Number: US-ROCHE-2830612

PATIENT
  Age: 81 Year
  Sex: Female
  Weight: 62.198 kg

DRUGS (10)
  1. ESBRIET [Suspect]
     Active Substance: PIRFENIDONE
     Indication: Idiopathic pulmonary fibrosis
     Route: 048
     Dates: start: 20210330
  2. ESBRIET [Suspect]
     Active Substance: PIRFENIDONE
     Indication: Pneumonia
     Route: 048
     Dates: start: 202105
  3. ESBRIET [Suspect]
     Active Substance: PIRFENIDONE
     Indication: Pulmonary fibrosis
     Dosage: THREE 267MG TABLET 3TIMES A DAY
     Route: 048
     Dates: start: 20210412
  4. ESBRIET [Suspect]
     Active Substance: PIRFENIDONE
     Route: 048
     Dates: start: 20210412
  5. ESBRIET [Suspect]
     Active Substance: PIRFENIDONE
     Route: 048
     Dates: start: 20210412
  6. ESBRIET [Suspect]
     Active Substance: PIRFENIDONE
     Route: 048
  7. OFEV [Concomitant]
     Active Substance: NINTEDANIB
  8. ALEVE [Concomitant]
     Active Substance: NAPROXEN SODIUM
  9. LASIX [Concomitant]
     Active Substance: FUROSEMIDE
  10. CIPRO [Concomitant]
     Active Substance: CIPROFLOXACIN HYDROCHLORIDE
     Indication: Urinary tract infection

REACTIONS (36)
  - Cerebral atrophy [Not Recovered/Not Resolved]
  - Fatigue [Not Recovered/Not Resolved]
  - Weight increased [Unknown]
  - Headache [Recovered/Resolved]
  - Decreased appetite [Unknown]
  - Sinusitis [Not Recovered/Not Resolved]
  - Gastrooesophageal reflux disease [Unknown]
  - Swelling [Recovering/Resolving]
  - Pain [Not Recovered/Not Resolved]
  - Eructation [Unknown]
  - Peripheral swelling [Not Recovered/Not Resolved]
  - Osteoarthritis [Not Recovered/Not Resolved]
  - Cough [Unknown]
  - Secretion discharge [Unknown]
  - Nausea [Unknown]
  - Vomiting [Unknown]
  - Ageusia [Recovering/Resolving]
  - Urinary tract infection [Not Recovered/Not Resolved]
  - Memory impairment [Not Recovered/Not Resolved]
  - Nightmare [Unknown]
  - Dementia [Unknown]
  - Dizziness [Unknown]
  - Thirst [Unknown]
  - Feeling abnormal [Recovered/Resolved]
  - Extra dose administered [Unknown]
  - COVID-19 [Recovering/Resolving]
  - Hypotension [Unknown]
  - Oropharyngeal pain [Unknown]
  - Speech disorder [Unknown]
  - Malaise [Unknown]
  - Headache [Not Recovered/Not Resolved]
  - Gastrointestinal disorder [Unknown]
  - Off label use [Unknown]
  - Weight decreased [Unknown]
  - Skin cancer [Unknown]
  - Pain in extremity [Unknown]

NARRATIVE: CASE EVENT DATE: 20210501
